FAERS Safety Report 4881167-8 (Version None)
Quarter: 2006Q1

REPORT INFORMATION
  Report Type: 
  Country: None (occurrence: None)
  Receive Date: 20060116
  Receipt Date: 20060109
  Transmission Date: 20060701
  Serious: Yes (Death, Hospitalization)
  Sender: FDA-Public Use
  Company Number: US-JNJFOC-20060101644

PATIENT
  Age: 70 Year
  Sex: Female

DRUGS (2)
  1. REMICADE [Suspect]
     Indication: AUTOIMMUNE HEPATITIS
     Route: 042
     Dates: start: 20050901, end: 20051001
  2. REMICADE [Suspect]
     Dosage: PATIENT RECEIVED THREE DOSES, WEEK 0, 2 AND 6.
     Route: 042
     Dates: start: 20050901, end: 20051001

REACTIONS (3)
  - DEATH [None]
  - GASTROINTESTINAL ANGIODYSPLASIA [None]
  - INTESTINAL ISCHAEMIA [None]
